FAERS Safety Report 9449990 (Version 1)
Quarter: 2013Q3

REPORT INFORMATION
  Report Type: Spontaneous
  Country: FR (occurrence: FR)
  Receive Date: 20130809
  Receipt Date: 20130809
  Transmission Date: 20140515
  Serious: Yes (Other)
  Sender: FDA-Public Use
  Company Number: FR-ASTRAZENECA-2013SE60170

PATIENT
  Age: 586 Month
  Sex: Female

DRUGS (2)
  1. PULMICORT [Suspect]
     Indication: ASTHMA
     Route: 055
     Dates: start: 2012
  2. AZOPT [Suspect]

REACTIONS (3)
  - Cold exposure injury [Recovered/Resolved]
  - Hypothermia [Unknown]
  - Rash generalised [Recovered/Resolved]
